FAERS Safety Report 24354196 (Version 1)
Quarter: 2024Q3

REPORT INFORMATION
  Report Type: Report from Study
  Country: US (occurrence: US)
  Receive Date: 20240923
  Receipt Date: 20240923
  Transmission Date: 20241016
  Serious: Yes (Death)
  Sender: ABBVIE
  Company Number: US-ABBVIE-5933507

PATIENT
  Age: 1 Year
  Sex: Male

DRUGS (1)
  1. IMBRUVICA [Suspect]
     Active Substance: IBRUTINIB
     Indication: Chronic graft versus host disease
     Route: 048
     Dates: start: 202409, end: 202409

REACTIONS (1)
  - Death [Fatal]

NARRATIVE: CASE EVENT DATE: 20240901
